FAERS Safety Report 4324741-X (Version None)
Quarter: 2004Q1

REPORT INFORMATION
  Report Type: 
  Country: None (occurrence: None)
  Receive Date: 20040326
  Receipt Date: 20040224
  Transmission Date: 20041129
  Serious: Yes (Life-Threatening, Hospitalization)
  Sender: FDA-Public Use
  Company Number: WAES 0402DEU00154

PATIENT
  Age: 40 Year
  Sex: Female
  Weight: 56 kg

DRUGS (4)
  1. LEVOTHYROXINE SODIUM [Concomitant]
     Route: 048
     Dates: start: 20000101
  2. ZOCOR [Suspect]
     Indication: TYPE IIA HYPERLIPIDAEMIA
     Route: 048
     Dates: start: 19990101, end: 20010501
  3. ZOCOR [Suspect]
     Route: 048
     Dates: start: 20010501, end: 20011001
  4. SOTALOL HYDROCHLORIDE [Concomitant]
     Route: 048
     Dates: start: 20000101

REACTIONS (5)
  - DRUG INTERACTION [None]
  - FOOD INTERACTION [None]
  - HYPOTHYROIDISM [None]
  - RHABDOMYOLYSIS [None]
  - SINUS TACHYCARDIA [None]
